FAERS Safety Report 12300110 (Version 4)
Quarter: 2016Q2

REPORT INFORMATION
  Report Type: Report from Study
  Country: US (occurrence: US)
  Receive Date: 20160425
  Receipt Date: 20160628
  Transmission Date: 20160815
  Serious: Yes (Hospitalization, Other)
  Sender: FDA-Public Use
  Company Number: US-GILEAD-2016-0210378

PATIENT
  Age: 55 Year
  Sex: Female
  Weight: 96 kg

DRUGS (15)
  1. AMBRISENTAN [Suspect]
     Active Substance: AMBRISENTAN
     Indication: PULMONARY HYPERTENSION
     Dosage: 5 MG, QD
     Route: 048
     Dates: start: 20160310
  2. PROAIR HFA [Concomitant]
     Active Substance: ALBUTEROL SULFATE
  3. TYLENOL [Concomitant]
     Active Substance: ACETAMINOPHEN
  4. OXYGEN. [Concomitant]
     Active Substance: OXYGEN
  5. RANITIDINE. [Concomitant]
     Active Substance: RANITIDINE
  6. GABAPENTIN. [Concomitant]
     Active Substance: GABAPENTIN
  7. LORATADINE. [Concomitant]
     Active Substance: LORATADINE
  8. AMBRISENTAN [Suspect]
     Active Substance: AMBRISENTAN
     Indication: SCLERODERMA
     Dosage: 10 MG, QD
     Route: 065
  9. METOPROLOL. [Concomitant]
     Active Substance: METOPROLOL
  10. TRAMADOL. [Concomitant]
     Active Substance: TRAMADOL
  11. ADCIRCA [Suspect]
     Active Substance: TADALAFIL
     Indication: PRODUCT USED FOR UNKNOWN INDICATION
     Route: 065
  12. LASIX [Concomitant]
     Active Substance: FUROSEMIDE
  13. SILDENAFIL. [Concomitant]
     Active Substance: SILDENAFIL
  14. AMLODIPINE [Concomitant]
     Active Substance: AMLODIPINE BESYLATE
  15. HYDROCODONE [Concomitant]
     Active Substance: HYDROCODONE

REACTIONS (7)
  - Pulmonary oedema [Unknown]
  - Fluid overload [Recovering/Resolving]
  - Dyspnoea exertional [Not Recovered/Not Resolved]
  - Musculoskeletal chest pain [Unknown]
  - Peripheral swelling [Not Recovered/Not Resolved]
  - Dyspnoea [Recovered/Resolved]
  - Fatigue [Not Recovered/Not Resolved]

NARRATIVE: CASE EVENT DATE: 20160330
